FAERS Safety Report 9905901 (Version 1)
Quarter: 2013Q2

REPORT INFORMATION
  Report Type: Spontaneous
  Country: US (occurrence: None)
  Receive Date: 20130627
  Receipt Date: 20130627
  Transmission Date: 20140414
  Serious: Yes (Other)
  Sender: FDA-Public Use
  Company Number: 1000044515

PATIENT
  Age: 82 Year
  Sex: Male

DRUGS (10)
  1. LINZESS (LINACLOTIDE) (145 MICROGRAM, CAPSULES) [Suspect]
     Indication: CONSTIPATION
     Dosage: 145 MCG (145 MCG, 1 IN 1 D) , ORAL
     Dates: start: 20130414
  2. DILTIAZEM (DILTIAZEM HYDROCHLORIDE) (DILTIAZEM) [Concomitant]
  3. FLECAINIDE (FLECAINIDE) (FLECAINIDE) [Concomitant]
  4. HYDRALAZINE (HYDRALAZINE) (HYDRALAZINE) [Concomitant]
  5. OMEPRAZOLE (OMEPRAZOLE) (OMEPRAZOLE) [Concomitant]
  6. OXYBUTRIN (OXYBUTYNIN HYDROCHLORIDE) (OXYBUTYNIN HYDROCHLORIDE) [Concomitant]
  7. PRAVASTATIN (PRAVASTATIN) (PRAVASTATIN) [Concomitant]
  8. WARFARIN (WARFARIN) (WARFARIN) [Concomitant]
  9. FUROSEMIDE (FUROSEMIDE) (FUROSEMIDE) [Concomitant]
  10. KLOR-CON (POTASSIUM CHLORIDE) (POTASSIUM CHLORIDE) [Concomitant]

REACTIONS (1)
  - Drug ineffective [None]
